FAERS Safety Report 4965938-5 (Version None)
Quarter: 2006Q2

REPORT INFORMATION
  Report Type: 
  Country: None (occurrence: None)
  Receive Date: 20060407
  Receipt Date: 20060329
  Transmission Date: 20061013
  Serious: Yes (Death)
  Sender: FDA-Public Use
  Company Number: GB-JNJFOC-20060200388

PATIENT
  Sex: Female

DRUGS (14)
  1. REMICADE [Suspect]
     Indication: RHEUMATOID ARTHRITIS
     Route: 042
  2. PREDNISOLONE [Concomitant]
  3. AMITRIPTYLINE [Concomitant]
  4. BECOTIDE [Concomitant]
  5. CEREBREX [Concomitant]
  6. NIFEDIPINE [Concomitant]
  7. VENTOLIN [Concomitant]
  8. ZESTORETIC [Concomitant]
  9. ZESTORETIC [Concomitant]
  10. CO-PROXAMOL [Concomitant]
  11. CO-PROXAMOL [Concomitant]
  12. LANSOPRAZOLE [Concomitant]
  13. ATOVASTATIN [Concomitant]
  14. SEREVENT [Concomitant]

REACTIONS (1)
  - RESPIRATORY FAILURE [None]
